FAERS Safety Report 7973766-1 (Version None)
Quarter: 2011Q4

REPORT INFORMATION
  Report Type: 
  Country: None (occurrence: None)
  Receive Date: 20111213
  Receipt Date: 20111201
  Transmission Date: 20120403
  Serious: Yes (Hospitalization)
  Sender: FDA-Public Use
  Company Number: PHHY2011SK105583

PATIENT
  Age: 79 Year
  Sex: Female

DRUGS (3)
  1. RASILEZ HCT [Suspect]
     Dates: start: 20110818, end: 20110908
  2. SARTAN [Concomitant]
  3. EBRANTIL [Concomitant]
     Dosage: 150 MG, PER DAY

REACTIONS (1)
  - ATRIAL FIBRILLATION [None]
